FAERS Safety Report 6192086-1 (Version None)
Quarter: 2009Q2

REPORT INFORMATION
  Report Type: 
  Country: None (occurrence: None)
  Receive Date: 20090515
  Receipt Date: 20090505
  Transmission Date: 20091009
  Serious: Yes (Life-Threatening, Hospitalization, Other)
  Sender: FDA-Public Use
  Company Number: US-PFIZER INC-001-0073-M0000165

PATIENT
  Sex: Male
  Weight: 86.168 kg

DRUGS (13)
  1. DILANTIN [Suspect]
     Indication: CONVULSION
     Dosage: DAILY
     Route: 048
     Dates: start: 19640101
  2. DILANTIN [Interacting]
     Indication: LOSS OF CONSCIOUSNESS
     Dosage: TID
     Route: 065
  3. WARFARIN SODIUM [Interacting]
     Indication: THROMBOSIS
     Dosage: UNK
     Route: 048
     Dates: start: 20020601
  4. WARFARIN SODIUM [Interacting]
     Dosage: UNK
     Dates: start: 20070101
  5. SYNTHROID [Concomitant]
     Dosage: UNK
     Route: 065
  6. MYSOLINE [Concomitant]
     Route: 065
  7. FINASTERIDE [Concomitant]
     Route: 048
  8. FUROSEMIDE [Concomitant]
     Route: 048
  9. CLONAZEPAM [Concomitant]
     Route: 048
  10. RABEPRAZOLE SODIUM [Concomitant]
     Route: 048
  11. DICYCLOMINE HCL [Concomitant]
     Route: 048
  12. POTASSIUM CHLORIDE [Concomitant]
     Route: 048
  13. LAMOTRIGINE [Concomitant]
     Dosage: UNK

REACTIONS (23)
  - ANTICONVULSANT DRUG LEVEL INCREASED [None]
  - BLOOD POTASSIUM DECREASED [None]
  - CHROMATOPSIA [None]
  - DIZZINESS [None]
  - DRUG INTERACTION [None]
  - GASTROOESOPHAGEAL REFLUX DISEASE [None]
  - GYNAECOMASTIA [None]
  - HEADACHE [None]
  - HIATUS HERNIA [None]
  - HYPERKALAEMIA [None]
  - INTERNATIONAL NORMALISED RATIO DECREASED [None]
  - LABORATORY TEST ABNORMAL [None]
  - MAMMOGRAM ABNORMAL [None]
  - OEDEMA PERIPHERAL [None]
  - OVERWEIGHT [None]
  - PERIPHERAL EMBOLISM [None]
  - POLYP [None]
  - PROSTATIC SPECIFIC ANTIGEN INCREASED [None]
  - PROSTATOMEGALY [None]
  - PULMONARY EMBOLISM [None]
  - SLEEP DISORDER [None]
  - THROMBOSIS [None]
  - THYROIDECTOMY [None]
